FAERS Safety Report 4563964-1 (Version None)
Quarter: 2005Q1

REPORT INFORMATION
  Report Type: 
  Country: None (occurrence: None)
  Receive Date: 20050121
  Receipt Date: 20050107
  Transmission Date: 20050727
  Serious: Yes (Life-Threatening)
  Sender: FDA-Public Use
  Company Number: 2005014678

PATIENT
  Age: 50 Year
  Sex: Male
  Weight: 94 kg

DRUGS (4)
  1. CELECOXIB (CELECOXIB) [Suspect]
     Indication: ARTHRITIS
     Dosage: 400 MG (200 MG, 2 IN 1 D), ORAL
     Route: 048
     Dates: end: 20041213
  2. PYRAZINAMIDE [Suspect]
     Indication: TUBERCULOSIS
     Dosage: 2 GRAM, ORAL
     Route: 048
     Dates: start: 20040721
  3. CAPREOMYCIN (CAPREOMYCIN) [Suspect]
     Indication: TUBERCULOSIS
     Dosage: 1 GRAM, INTRAMUSCULAR
     Route: 030
     Dates: start: 20040721, end: 20041213
  4. MOXIFLOXACIN HCL [Concomitant]

REACTIONS (2)
  - PLATELET COUNT DECREASED [None]
  - TONGUE BLISTERING [None]
